FAERS Safety Report 10151239 (Version 1)
Quarter: 2014Q2

REPORT INFORMATION
  Report Type: Spontaneous
  Country: US (occurrence: US)
  Receive Date: 20140502
  Receipt Date: 20140502
  Transmission Date: 20141212
  Serious: No
  Sender: FDA-Public Use
  Company Number: US-ASTRAZENECA-2014SE17305

PATIENT
  Age: 85 Year
  Sex: Female

DRUGS (3)
  1. PRILOSEC OTC [Suspect]
     Route: 048
     Dates: start: 20140308
  2. ANTIHYPERTENSIVES [Concomitant]
     Dosage: UNKNOWN
  3. CHOLESTEROL- AND TRIGLYCERIDE REDUCERS [Concomitant]
     Dosage: UNKNOWN

REACTIONS (1)
  - Glossodynia [Not Recovered/Not Resolved]
